FAERS Safety Report 9772968 (Version 2)
Quarter: 2014Q2

REPORT INFORMATION
  Report Type: Spontaneous
  Country: US (occurrence: US)
  Receive Date: 20131219
  Receipt Date: 20140401
  Transmission Date: 20141212
  Serious: Yes (Hospitalization, Other)
  Sender: FDA-Public Use
  Company Number: US-BAYER-2013-151816

PATIENT
  Age: 29 Year
  Sex: Female
  Weight: 58.05 kg

DRUGS (3)
  1. MIRENA [Suspect]
     Indication: CONTRACEPTION
     Dosage: 20 MCG/24HR, CONT
     Route: 015
     Dates: start: 20100429, end: 20100930
  2. PREDNISONE [Concomitant]
     Dosage: UNK
     Dates: start: 1986
  3. SUBOXONE [Concomitant]

REACTIONS (9)
  - Device dislocation [None]
  - Device dislocation [None]
  - Post procedural haematoma [None]
  - Device difficult to use [None]
  - Injury [None]
  - Pain [None]
  - Emotional distress [None]
  - Depression [None]
  - Anxiety [None]
